FAERS Safety Report 18071941 (Version 1)
Quarter: 2020Q3

REPORT INFORMATION
  Report Type: Report from Study
  Country: CA (occurrence: CA)
  Receive Date: 20200727
  Receipt Date: 20200727
  Transmission Date: 20201103
  Serious: Yes (Other)
  Sender: FDA-Public Use
  Company Number: CA-ACCORD-192479

PATIENT
  Age: 46 Year
  Sex: Male

DRUGS (6)
  1. BETAMETHASONE. [Concomitant]
     Active Substance: BETAMETHASONE
     Route: 065
  2. SIMPONI [Concomitant]
     Active Substance: GOLIMUMAB
     Route: 058
  3. CICLOSPORIN [Suspect]
     Active Substance: CYCLOSPORINE
     Indication: PRODUCT USED FOR UNKNOWN INDICATION
     Route: 065
  4. COSENTYX [Suspect]
     Active Substance: SECUKINUMAB
     Indication: PSORIASIS
     Route: 058
  5. METHOTREXATE. [Suspect]
     Active Substance: METHOTREXATE
     Indication: PRODUCT USED FOR UNKNOWN INDICATION
     Route: 065
  6. BRODALUMAB [Concomitant]
     Active Substance: BRODALUMAB
     Route: 065

REACTIONS (14)
  - Psoriatic arthropathy [Recovered/Resolved]
  - Drug ineffective [Unknown]
  - Tonsillitis bacterial [Recovered/Resolved]
  - Bladder disorder [Recovered/Resolved]
  - Malaise [Recovered/Resolved]
  - Pain [Recovered/Resolved]
  - Paraesthesia [Recovered/Resolved]
  - Urinary incontinence [Recovered/Resolved]
  - Depressed mood [Recovered/Resolved]
  - Influenza [Recovered/Resolved]
  - Prostate cancer [Recovered/Resolved]
  - Crying [Recovered/Resolved]
  - Depression [Recovered/Resolved]
  - Pharyngitis [Recovered/Resolved]
